FAERS Safety Report 6123445-0 (Version None)
Quarter: 2009Q1

REPORT INFORMATION
  Report Type: 
  Country: None (occurrence: None)
  Receive Date: 20090318
  Receipt Date: 20090306
  Transmission Date: 20090719
  Serious: No
  Sender: FDA-Public Use
  Company Number: US-B.I. PHARMACEUTICALS,INC./RIDGEFIELD-2007-BP-17460BP

PATIENT
  Sex: Male
  Weight: 96 kg

DRUGS (2)
  1. MIRAPEX [Suspect]
     Indication: RESTLESS LEGS SYNDROME
     Dosage: 5.5MG
     Route: 048
     Dates: start: 20011218, end: 20050721
  2. MIRAPEX [Suspect]
     Indication: INSOMNIA

REACTIONS (5)
  - ANXIETY [None]
  - DEPRESSION [None]
  - EMOTIONAL DISTRESS [None]
  - PATHOLOGICAL GAMBLING [None]
  - SUICIDAL IDEATION [None]
